FAERS Safety Report 20258547 (Version 1)
Quarter: 2021Q4

REPORT INFORMATION
  Report Type: Spontaneous
  Country: US (occurrence: None)
  Receive Date: 20211229
  Receipt Date: 20211229
  Transmission Date: 20220303
  Serious: Yes (Hospitalization, Other)
  Sender: FDA-Public Use
  Company Number: None

PATIENT
  Age: 37 Year
  Sex: Female
  Weight: 61.23 kg

DRUGS (3)
  1. RISPERDAL [Suspect]
     Active Substance: RISPERIDONE
  2. ATIVAN [Suspect]
     Active Substance: LORAZEPAM
  3. METOPROLOL [Suspect]
     Active Substance: METOPROLOL

REACTIONS (2)
  - Retained placenta or membranes [None]
  - Postpartum haemorrhage [None]

NARRATIVE: CASE EVENT DATE: 20201022
